FAERS Safety Report 20933503 (Version 1)
Quarter: 2022Q2

REPORT INFORMATION
  Report Type: Spontaneous
  Country: US (occurrence: None)
  Receive Date: 20220607
  Receipt Date: 20220607
  Transmission Date: 20220720
  Serious: No
  Sender: FDA-Public Use
  Company Number: None

PATIENT
  Sex: Female

DRUGS (1)
  1. XARELTO [Suspect]
     Active Substance: RIVAROXABAN
     Indication: Uterine cancer
     Dosage: 20MG ONCE A DAY ORAL
     Route: 048

REACTIONS (2)
  - Haemorrhage [None]
  - Thrombosis [None]
